FAERS Safety Report 24319033 (Version 1)
Quarter: 2024Q3

REPORT INFORMATION
  Report Type: Report from Study
  Country: US (occurrence: US)
  Receive Date: 20240913
  Receipt Date: 20240913
  Transmission Date: 20241016
  Serious: No
  Sender: INCYTE
  Company Number: US-INCYTE CORPORATION-2024IN008845

PATIENT

DRUGS (3)
  1. JAKAFI [Suspect]
     Active Substance: RUXOLITINIB
     Indication: Chronic graft versus host disease
     Dosage: UNK, QD
     Route: 065
     Dates: start: 202202
  2. JAKAFI [Suspect]
     Active Substance: RUXOLITINIB
     Dosage: CUT 10MG TABLET IN HALF AND TAKE ONCE DAILY
     Route: 065
  3. NORGESTIMATE [Concomitant]
     Active Substance: NORGESTIMATE
     Indication: Contraception
     Dosage: UNK
     Route: 065

REACTIONS (3)
  - Insurance issue [Unknown]
  - Wrong technique in product usage process [Unknown]
  - Diarrhoea [Unknown]
